FAERS Safety Report 12623317 (Version 1)
Quarter: 2016Q3

REPORT INFORMATION
  Report Type: Spontaneous
  Country: US (occurrence: US)
  Receive Date: 20160804
  Receipt Date: 20160804
  Transmission Date: 20161109
  Serious: Yes (Hospitalization)
  Sender: FDA-Public Use
  Company Number: US-METHAPHARM INC.-1055889

PATIENT
  Age: 67 Year
  Sex: Female

DRUGS (2)
  1. 0.9% SODIUM CHLORIDE FOR INJECTION [Suspect]
     Active Substance: SODIUM CHLORIDE
     Dates: start: 20160504, end: 20160504
  2. PROVOCHOLINE [Suspect]
     Active Substance: METHACHOLINE CHLORIDE
     Indication: PULMONARY FUNCTION CHALLENGE TEST
     Route: 050
     Dates: start: 20160504, end: 20160504

REACTIONS (1)
  - Chest pain [Unknown]

NARRATIVE: CASE EVENT DATE: 20160504
